FAERS Safety Report 15210336 (Version 1)
Quarter: 2018Q3

REPORT INFORMATION
  Report Type: Spontaneous
  Country: US (occurrence: US)
  Receive Date: 20180629
  Receipt Date: 20180629
  Transmission Date: 20181010
  Serious: Yes (Other)
  Sender: FDA-Public Use
  Company Number: None

PATIENT
  Age: 71 Year
  Sex: Female
  Weight: 78.93 kg

DRUGS (6)
  1. GADOLINIUM [Suspect]
     Active Substance: GADOLINIUM
  2. LISINOPREL [Concomitant]
  3. CATS CLAW [Concomitant]
  4. SYNTHROID [Concomitant]
     Active Substance: LEVOTHYROXINE SODIUM
  5. DAILY VIT 50+ [Concomitant]
  6. TURMERIC [Concomitant]
     Active Substance: HERBALS\TURMERIC

REACTIONS (7)
  - Headache [None]
  - Nausea [None]
  - Arthralgia [None]
  - Feeling abnormal [None]
  - Pyrexia [None]
  - Fatigue [None]
  - Neuralgia [None]

NARRATIVE: CASE EVENT DATE: 20180330
